FAERS Safety Report 11840660 (Version 1)
Quarter: 2015Q4

REPORT INFORMATION
  Report Type: Spontaneous
  Country: US (occurrence: None)
  Receive Date: 20151215
  Receipt Date: 20151215
  Transmission Date: 20160305
  Serious: Yes (Other)
  Sender: FDA-Public Use
  Company Number: None

PATIENT
  Age: 75 Year
  Sex: Female
  Weight: 93.44 kg

DRUGS (17)
  1. LATANOPROST. [Concomitant]
     Active Substance: LATANOPROST
  2. VITAMIN B COMPLEX [Concomitant]
     Active Substance: CYANOCOBALAMIN\DEXPANTHENOL\NIACINAMIDE\PYRIDOXINE HYDROCHLORIDE\RIBOFLAVIN 5^-PHOSPHATE SODIUM\THIAMINE HYDROCHLORIDE\VITAMIN B COMPLEX
  3. IRON [Concomitant]
     Active Substance: IRON
  4. ALPAGAN [Concomitant]
  5. VITAMIN E [Concomitant]
     Active Substance: .ALPHA.-TOCOPHEROL
  6. BUMERIL BUMETANIDE [Suspect]
     Active Substance: BUMETANIDE
     Indication: JOINT SWELLING
     Dosage: 1 PILL 2X DLY BY MOUTH
     Route: 048
     Dates: start: 20150930, end: 20151020
  7. ATORVASTATIN [Concomitant]
     Active Substance: ATORVASTATIN
  8. AMIODARONE [Concomitant]
     Active Substance: AMIODARONE
  9. CARVEDILOL. [Concomitant]
     Active Substance: CARVEDILOL
  10. ANTI ITCH + RASH OINTMENT [Concomitant]
  11. WARFARIN [Concomitant]
     Active Substance: WARFARIN
  12. ERYTHROMYCIN. [Concomitant]
     Active Substance: ERYTHROMYCIN
  13. BUMERIL BUMETANIDE [Suspect]
     Active Substance: BUMETANIDE
     Indication: PERIPHERAL SWELLING
     Dosage: 1 PILL 2X DLY BY MOUTH
     Route: 048
     Dates: start: 20150930, end: 20151020
  14. AZOPT [Concomitant]
     Active Substance: BRINZOLAMIDE
  15. OXZAPAM [Concomitant]
  16. COQ10 [Concomitant]
     Active Substance: UBIDECARENONE
  17. FUROSEMIDE. [Concomitant]
     Active Substance: FUROSEMIDE

REACTIONS (4)
  - Rash [None]
  - Scar [None]
  - Skin disorder [None]
  - Pruritus generalised [None]

NARRATIVE: CASE EVENT DATE: 20151005
